FAERS Safety Report 19969789 (Version 1)
Quarter: 2021Q4

REPORT INFORMATION
  Report Type: Spontaneous
  Country: FR (occurrence: FR)
  Receive Date: 20211019
  Receipt Date: 20211019
  Transmission Date: 20220303
  Serious: Yes (Hospitalization)
  Sender: FDA-Public Use
  Company Number: None

PATIENT
  Age: 47 Year
  Sex: Male
  Weight: 107 kg

DRUGS (13)
  1. DIAZEPAM [Suspect]
     Active Substance: DIAZEPAM
     Indication: Anxiety
     Dosage: 20 MILLIGRAM DAILY; 5 MG 1-1-2:
     Route: 048
     Dates: start: 20210308, end: 20210317
  2. CYAMEMAZINE [Suspect]
     Active Substance: CYAMEMAZINE
     Indication: Psychotic disorder
     Dosage: 300 MILLIGRAM DAILY; 100MG 1-1-1?+ 1 TAB IF SHAKING
     Route: 048
     Dates: start: 20210308, end: 20210317
  3. VALPROATE SODIUM [Concomitant]
     Active Substance: VALPROATE SODIUM
     Dosage: PROLONGED-RELEASE SCORED FILM-COATED TABLET
  4. LOPRESSOR [Concomitant]
     Active Substance: METOPROLOL TARTRATE
  5. FOLIC ACID [Concomitant]
     Active Substance: FOLIC ACID
  6. ZOLPIDEM TARTRATE [Concomitant]
     Active Substance: ZOLPIDEM TARTRATE
  7. DAFALGAN [Concomitant]
     Active Substance: ACETAMINOPHEN
  8. TRANSIPEG [Concomitant]
     Dosage: POWDER FOR ORAL SOLUTION IN SACHET
  9. RAMIPRIL [Concomitant]
     Active Substance: RAMIPRIL
  10. FERROUS SULFATE [Concomitant]
     Active Substance: FERROUS SULFATE
  11. FUROSEMIDE [Concomitant]
     Active Substance: FUROSEMIDE
  12. RISPERIDONE [Concomitant]
     Active Substance: RISPERIDONE
  13. MELATONIN [Concomitant]
     Active Substance: MELATONIN

REACTIONS (3)
  - Altered state of consciousness [Recovered/Resolved]
  - Hypotension [Recovered/Resolved]
  - Hypothermia [Recovered/Resolved]

NARRATIVE: CASE EVENT DATE: 20210315
